FAERS Safety Report 6302759-5 (Version None)
Quarter: 2009Q3

REPORT INFORMATION
  Report Type: 
  Country: None (occurrence: None)
  Receive Date: 20090810
  Receipt Date: 20090806
  Transmission Date: 20100115
  Serious: Yes (Life-Threatening)
  Sender: FDA-Public Use
  Company Number: JP-ASTRAZENECA-2009SE07042

PATIENT
  Age: 81 Year
  Sex: Female

DRUGS (2)
  1. ANANAPEINE INJECTION [Suspect]
     Indication: EPIDURAL ANAESTHESIA
     Route: 008
  2. XYLOCAINE [Suspect]
     Indication: EPIDURAL ANAESTHESIA
     Route: 008

REACTIONS (2)
  - CONVULSION [None]
  - OVERDOSE [None]
